FAERS Safety Report 12342109 (Version 1)
Quarter: 2016Q2

REPORT INFORMATION
  Report Type: Spontaneous
  Country: US (occurrence: US)
  Receive Date: 20160506
  Receipt Date: 20160506
  Transmission Date: 20160815
  Serious: Yes (Hospitalization)
  Sender: FDA-Public Use
  Company Number: US-ASTELLAS-2016US017341

PATIENT
  Sex: Female

DRUGS (1)
  1. PROGRAF [Suspect]
     Active Substance: TACROLIMUS\TACROLIMUS ANHYDROUS
     Indication: RENAL TRANSPLANT
     Dosage: 3 MG DAILY (1 MG 2 CAPSULE EVERY MORNING AND 1 CAPSULE EVERY EVENING)
     Route: 048
     Dates: start: 20150120, end: 20151204

REACTIONS (1)
  - Hospitalisation [Not Recovered/Not Resolved]
